FAERS Safety Report 21183131 (Version 1)
Quarter: 2022Q3

REPORT INFORMATION
  Report Type: Spontaneous
  Country: None (occurrence: US)
  Receive Date: 20220808
  Receipt Date: 20220808
  Transmission Date: 20221027
  Serious: Yes (Hospitalization)
  Sender: FDA-Public Use
  Company Number: US-Oxford Pharmaceuticals, LLC-2131578

PATIENT
  Age: 73 Year
  Sex: Female
  Weight: 69.90 kg

DRUGS (5)
  1. AMLODIPINE BESYLATE [Suspect]
     Active Substance: AMLODIPINE BESYLATE
     Indication: Product used for unknown indication
     Route: 048
  2. MEMANTINE [Suspect]
     Active Substance: MEMANTINE
  3. ATORVASTATIN [Suspect]
     Active Substance: ATORVASTATIN
  4. ESCITALOPRAM [Suspect]
     Active Substance: ESCITALOPRAM OXALATE
  5. APIXABAN [Suspect]
     Active Substance: APIXABAN

REACTIONS (4)
  - Accidental exposure to product [Unknown]
  - Overdose [Unknown]
  - Heart rate decreased [Unknown]
  - Blood pressure decreased [Unknown]
